FAERS Safety Report 16111732 (Version 4)
Quarter: 2019Q2

REPORT INFORMATION
  Report Type: Report from Study
  Country: US (occurrence: US)
  Receive Date: 20190325
  Receipt Date: 20190525
  Transmission Date: 20190711
  Serious: Yes (Hospitalization)
  Sender: FDA-Public Use
  Company Number: PHEH2019US012098

PATIENT
  Sex: Male

DRUGS (1)
  1. ENTRESTO [Suspect]
     Active Substance: SACUBITRIL\VALSARTAN
     Indication: CARDIAC FAILURE
     Dosage: 1 DF (24/26) MG, BID
     Route: 048

REACTIONS (8)
  - Blood glucose decreased [Unknown]
  - Confusional state [Unknown]
  - Hypokinesia [Unknown]
  - Dyspnoea [Unknown]
  - Hypotension [Unknown]
  - Feeling cold [Unknown]
  - Heart rate decreased [Unknown]
  - Dizziness [Unknown]
